FAERS Safety Report 18937527 (Version 1)
Quarter: 2021Q1

REPORT INFORMATION
  Report Type: Spontaneous
  Country: US (occurrence: US)
  Receive Date: 20210224
  Receipt Date: 20210224
  Transmission Date: 20210420
  Serious: No
  Sender: FDA-Public Use
  Company Number: None

PATIENT
  Age: 70 Year
  Sex: Female
  Weight: 72.57 kg

DRUGS (8)
  1. CYTOMEL [Concomitant]
     Active Substance: LIOTHYRONINE SODIUM
  2. BASIC CARE ACID REDUCER (FAMOTIDINE) [Suspect]
     Active Substance: FAMOTIDINE
     Indication: GASTROOESOPHAGEAL REFLUX DISEASE
     Dosage: ?          QUANTITY:1 DF DOSAGE FORM;OTHER FREQUENCY:2 PER DAY;?
     Route: 048
     Dates: start: 20210120, end: 20210203
  3. ONE A DAY VITAMINS (WOMEN OVER 50) [Concomitant]
  4. SYNTHROID [Concomitant]
     Active Substance: LEVOTHYROXINE SODIUM
  5. B12 INJECTIONS [Concomitant]
  6. METRONIDAZOLE. [Concomitant]
     Active Substance: METRONIDAZOLE
  7. RALOXIFENE. [Concomitant]
     Active Substance: RALOXIFENE
  8. TRIAMCINOLONE [Concomitant]
     Active Substance: TRIAMCINOLONE

REACTIONS (3)
  - Gastrooesophageal reflux disease [None]
  - Drug ineffective [None]
  - Product substitution [None]

NARRATIVE: CASE EVENT DATE: 20210203
